FAERS Safety Report 20073731 (Version 2)
Quarter: 2021Q4

REPORT INFORMATION
  Report Type: Report from Study
  Country: US (occurrence: US)
  Receive Date: 20211116
  Receipt Date: 20211202
  Transmission Date: 20220303
  Serious: Yes (Hospitalization, Congenital Anomaly)
  Sender: FDA-Public Use
  Company Number: US-TAKEDA-2021TUS069764

PATIENT
  Age: 0 Day
  Sex: Male

DRUGS (28)
  1. VEDOLIZUMAB [Suspect]
     Active Substance: VEDOLIZUMAB
     Indication: Crohn^s disease
     Dosage: 300 MILLIGRAM
     Route: 064
     Dates: start: 20190904, end: 20200206
  2. VEDOLIZUMAB [Suspect]
     Active Substance: VEDOLIZUMAB
     Dosage: 300 MILLIGRAM
     Route: 064
     Dates: start: 20200415, end: 20200601
  3. VEDOLIZUMAB [Suspect]
     Active Substance: VEDOLIZUMAB
     Dosage: 300 MILLIGRAM
     Route: 064
     Dates: start: 20200629, end: 20200727
  4. GAS-X [Concomitant]
     Active Substance: DIMETHICONE
     Indication: Abdominal pain upper
     Dosage: UNK
     Dates: start: 20200515, end: 20200903
  5. GAS-X [Concomitant]
     Active Substance: DIMETHICONE
     Indication: Flatulence
     Dosage: UNK
     Dates: start: 20190512, end: 20200514
  6. OMEPRAZOLE [Concomitant]
     Active Substance: OMEPRAZOLE
     Indication: Gastrooesophageal reflux disease
     Dosage: 20 MILLIGRAM
     Route: 048
     Dates: start: 20200713, end: 20200713
  7. OMEPRAZOLE [Concomitant]
     Active Substance: OMEPRAZOLE
     Dosage: 20 MILLIGRAM
     Route: 048
     Dates: start: 20200605, end: 20200903
  8. VITAMINS [Concomitant]
     Active Substance: VITAMINS
     Dosage: UNK
     Dates: start: 20150701, end: 20200515
  9. SYNTHROID [Concomitant]
     Active Substance: LEVOTHYROXINE SODIUM
     Indication: Hypothyroidism
     Dosage: 75 MICROGRAM
     Route: 048
     Dates: start: 20191205, end: 20200125
  10. SYNTHROID [Concomitant]
     Active Substance: LEVOTHYROXINE SODIUM
     Dosage: 88 MICROGRAM
     Route: 048
     Dates: start: 20200126, end: 20200226
  11. SYNTHROID [Concomitant]
     Active Substance: LEVOTHYROXINE SODIUM
     Dosage: 100 MICROGRAM
     Route: 048
     Dates: start: 20200227, end: 20200402
  12. SYNTHROID [Concomitant]
     Active Substance: LEVOTHYROXINE SODIUM
     Dosage: 125 MICROGRAM
     Route: 048
     Dates: start: 20200403, end: 20200823
  13. SYNTHROID [Concomitant]
     Active Substance: LEVOTHYROXINE SODIUM
     Dosage: 112 MICROGRAM
     Route: 048
     Dates: start: 20200824, end: 20200903
  14. TUMS [Concomitant]
     Active Substance: CALCIUM CARBONATE
     Indication: Dyspepsia
     Dosage: UNK
     Dates: start: 20191205, end: 20200903
  15. TUMS [Concomitant]
     Active Substance: CALCIUM CARBONATE
     Indication: Gastrooesophageal reflux disease
  16. TYLENOL [Concomitant]
     Active Substance: ACETAMINOPHEN
     Indication: Headache
     Dosage: 500 MILLIGRAM
     Route: 048
     Dates: start: 20191205, end: 20200407
  17. TYLENOL [Concomitant]
     Active Substance: ACETAMINOPHEN
     Indication: Myalgia
     Dosage: 750 MILLIGRAM
     Route: 048
     Dates: start: 20200515, end: 20200729
  18. TYLENOL [Concomitant]
     Active Substance: ACETAMINOPHEN
     Dosage: 750 MILLIGRAM
     Route: 048
     Dates: start: 20200730, end: 20200903
  19. AUGMENTIN [Concomitant]
     Active Substance: AMOXICILLIN\CLAVULANATE POTASSIUM
     Indication: Sinusitis
     Dosage: UNK
     Route: 048
     Dates: start: 20200310, end: 20200314
  20. BUDESONIDE [Concomitant]
     Active Substance: BUDESONIDE
     Indication: Crohn^s disease
     Dosage: UNK
     Dates: start: 20190715, end: 20191115
  21. DECADRON [Concomitant]
     Active Substance: DEXAMETHASONE
     Indication: Pharyngeal ulceration
     Dosage: UNK
     Dates: start: 20190515, end: 20190615
  22. DECADRON [Concomitant]
     Active Substance: DEXAMETHASONE
     Indication: Crohn^s disease
  23. LIDOCAINE [Concomitant]
     Active Substance: LIDOCAINE
     Indication: Pharyngeal ulceration
     Dosage: UNK
     Route: 061
     Dates: start: 20190501, end: 20190531
  24. LIDOCAINE [Concomitant]
     Active Substance: LIDOCAINE
     Indication: Crohn^s disease
  25. MIRALAX [Concomitant]
     Active Substance: POLYETHYLENE GLYCOL 3350
     Indication: Constipation
     Dosage: 17 GRAM
     Route: 048
     Dates: start: 20200201, end: 20200210
  26. MIRALAX [Concomitant]
     Active Substance: POLYETHYLENE GLYCOL 3350
     Dosage: UNK
     Route: 048
     Dates: start: 20200215, end: 20200229
  27. PENTASA [Concomitant]
     Active Substance: MESALAMINE
     Indication: Crohn^s disease
     Dosage: UNK
     Dates: start: 20190515, end: 20190615
  28. GLYCERIN [Concomitant]
     Active Substance: GLYCERIN
     Indication: Constipation
     Dosage: UNK
     Dates: start: 20200801, end: 20200903

REACTIONS (8)
  - Vocal cord paresis [Unknown]
  - Marcus Gunn syndrome [Unknown]
  - Developmental delay [Unknown]
  - Vomiting [Unknown]
  - Gastrooesophageal reflux disease [Unknown]
  - Rash [Unknown]
  - Foetal exposure during pregnancy [Unknown]
  - Exposure via breast milk [Unknown]

NARRATIVE: CASE EVENT DATE: 20200903
